FAERS Safety Report 12906238 (Version 1)
Quarter: 2016Q4

REPORT INFORMATION
  Report Type: Report from Study
  Country: BR (occurrence: BR)
  Receive Date: 20161103
  Receipt Date: 20161103
  Transmission Date: 20170207
  Serious: Yes (Hospitalization)
  Sender: FDA-Public Use
  Company Number: PHHY2016BR150460

PATIENT
  Age: 88 Year
  Sex: Female
  Weight: 52 kg

DRUGS (2)
  1. EXELON PATCH [Suspect]
     Active Substance: RIVASTIGMINE
     Indication: PRODUCT USED FOR UNKNOWN INDICATION
     Dosage: 9.5 MG (PATCH 10 CM2)
     Route: 062
  2. EXELON PATCH [Suspect]
     Active Substance: RIVASTIGMINE
     Dosage: 13.3 MG, QD (PATCH 15 CM2)
     Route: 062

REACTIONS (5)
  - Urinary tract infection [Unknown]
  - Eating disorder [Unknown]
  - Gait disturbance [Unknown]
  - Pneumonia [Unknown]
  - Disease progression [Unknown]

NARRATIVE: CASE EVENT DATE: 20160319
